FAERS Safety Report 5594393-X (Version None)
Quarter: 2008Q1

REPORT INFORMATION
  Report Type: 
  Country: None (occurrence: None)
  Receive Date: 20080117
  Receipt Date: 20080110
  Transmission Date: 20080703
  Serious: Yes (Hospitalization)
  Sender: FDA-Public Use
  Company Number: JP-JNJFOC-20040804613

PATIENT
  Sex: Male
  Weight: 55 kg

DRUGS (50)
  1. REMICADE [Suspect]
     Route: 042
  2. REMICADE [Suspect]
     Route: 042
  3. REMICADE [Suspect]
     Route: 042
  4. REMICADE [Suspect]
     Route: 042
  5. REMICADE [Suspect]
     Route: 042
  6. REMICADE [Suspect]
     Route: 042
  7. REMICADE [Suspect]
     Route: 042
  8. REMICADE [Suspect]
     Route: 042
  9. REMICADE [Suspect]
     Route: 042
  10. REMICADE [Suspect]
     Route: 042
  11. REMICADE [Suspect]
     Route: 042
  12. REMICADE [Suspect]
     Route: 042
  13. REMICADE [Suspect]
     Route: 042
  14. REMICADE [Suspect]
     Route: 042
  15. REMICADE [Suspect]
     Route: 042
  16. REMICADE [Suspect]
     Route: 042
  17. REMICADE [Suspect]
     Route: 042
  18. REMICADE [Suspect]
     Route: 042
  19. REMICADE [Suspect]
     Indication: RHEUMATOID ARTHRITIS
     Route: 042
  20. METHOTREXATE [Suspect]
     Route: 048
  21. METHOTREXATE [Suspect]
     Indication: RHEUMATOID ARTHRITIS
     Route: 048
  22. ISONIAZID [Suspect]
     Indication: ANTIBIOTIC PROPHYLAXIS
     Route: 048
  23. ADRENAL HORMONE PREPARATION [Concomitant]
     Indication: RHEUMATOID ARTHRITIS
  24. DIPHENHYDRAMINE HYDROCHLORIDE [Concomitant]
     Route: 048
  25. DIPHENHYDRAMINE HYDROCHLORIDE [Concomitant]
     Indication: PREMEDICATION
     Route: 048
  26. ANTIHISTAMINE [Concomitant]
  27. ANTIHISTAMINE [Concomitant]
  28. ANTIHISTAMINE [Concomitant]
  29. ANTIHISTAMINE [Concomitant]
  30. ANTIHISTAMINE [Concomitant]
  31. ANTIHISTAMINE [Concomitant]
  32. ANTIHISTAMINE [Concomitant]
  33. ANTIHISTAMINE [Concomitant]
  34. ANTIHISTAMINE [Concomitant]
  35. ANTIHISTAMINE [Concomitant]
  36. ANTIHISTAMINE [Concomitant]
  37. ANTIHISTAMINE [Concomitant]
  38. ANTIHISTAMINE [Concomitant]
  39. ANTIHISTAMINE [Concomitant]
  40. ANTIHISTAMINE [Concomitant]
  41. ANTIHISTAMINE [Concomitant]
     Indication: PROPHYLAXIS
  42. PRESNISOLONE [Concomitant]
     Route: 048
  43. PRESNISOLONE [Concomitant]
     Route: 048
  44. PRESNISOLONE [Concomitant]
     Indication: RHEUMATOID ARTHRITIS
     Route: 048
  45. VOLTAREN [Concomitant]
     Indication: RHEUMATOID ARTHRITIS
     Dosage: AT THE ONSET OF PAIN
     Route: 054
  46. VITAMIN B COMPLEX CAP [Concomitant]
     Route: 048
  47. BASEN OD [Concomitant]
     Indication: RHEUMATOID ARTHRITIS
     Route: 048
  48. JUVELA NICOTINATE [Concomitant]
     Indication: RHEUMATOID ARTHRITIS
     Route: 048
  49. CYTOTEC [Concomitant]
     Indication: GASTRIC ULCER
     Route: 048
  50. FERO-GRADUMET [Concomitant]
     Indication: ANAEMIA
     Route: 048

REACTIONS (5)
  - CHOLELITHIASIS [None]
  - HEPATIC FUNCTION ABNORMAL [None]
  - HEPATITIS ACUTE [None]
  - PYREXIA [None]
  - VOMITING [None]
